FAERS Safety Report 5321334-2 (Version None)
Quarter: 2007Q2

REPORT INFORMATION
  Report Type: 
  Country: None (occurrence: None)
  Receive Date: 20070510
  Receipt Date: 20070430
  Transmission Date: 20071010
  Serious: Yes (Other)
  Sender: FDA-Public Use
  Company Number: US-GENENTECH-240821

PATIENT
  Sex: Female

DRUGS (2)
  1. HERCEPTIN [Suspect]
     Indication: METASTATIC NEOPLASM
  2. TETRACYCLINE HYDROCHLORIDE [Concomitant]
     Indication: DRUG USE FOR UNKNOWN INDICATION

REACTIONS (2)
  - HYDRONEPHROSIS [None]
  - THROMBOSIS [None]
